FAERS Safety Report 6187213-6 (Version None)
Quarter: 2009Q2

REPORT INFORMATION
  Report Type: 
  Country: None (occurrence: None)
  Receive Date: 20090512
  Receipt Date: 20090501
  Transmission Date: 20091009
  Serious: Yes (Hospitalization)
  Sender: FDA-Public Use
  Company Number: PHEH2009US04312

PATIENT
  Sex: Female

DRUGS (3)
  1. ENABLEX [Suspect]
  2. MIACALCIN [Suspect]
  3. DRUG THERAPY NOS [Concomitant]
     Indication: CONSTIPATION

REACTIONS (1)
  - BREAST LUMP REMOVAL [None]
